FAERS Safety Report 21913939 (Version 1)
Quarter: 2023Q1

REPORT INFORMATION
  Report Type: Spontaneous
  Country: US (occurrence: US)
  Receive Date: 20230125
  Receipt Date: 20230125
  Transmission Date: 20230417
  Serious: No
  Sender: FDA-Public Use
  Company Number: US-ALLERGAN-2224273US

PATIENT
  Age: 55 Year
  Sex: Female
  Weight: 65.77 kg

DRUGS (1)
  1. BOTOX [Suspect]
     Active Substance: ONABOTULINUMTOXINA
     Indication: Periarthritis
     Dosage: UNK UNK, SINGLE
     Dates: start: 20220705, end: 20220705

REACTIONS (2)
  - Joint range of motion decreased [Not Recovered/Not Resolved]
  - Off label use [Unknown]

NARRATIVE: CASE EVENT DATE: 20220707
